FAERS Safety Report 16941799 (Version 1)
Quarter: 2019Q4

REPORT INFORMATION
  Report Type: Spontaneous
  Country: US (occurrence: US)
  Receive Date: 20190829
  Receipt Date: 20190829
  Transmission Date: 20200122
  Serious: No
  Sender: FDA-Public Use
  Company Number: None

PATIENT
  Age: 32 Year
  Sex: Male

DRUGS (1)
  1. MAVYRET [Suspect]
     Active Substance: GLECAPREVIR\PIBRENTASVIR
     Indication: HEPATITIS C
     Route: 048
     Dates: start: 201905

REACTIONS (5)
  - Headache [None]
  - Musculoskeletal stiffness [None]
  - Fatigue [None]
  - Lethargy [None]
  - Myalgia [None]

NARRATIVE: CASE EVENT DATE: 20190829
